FAERS Safety Report 10028853 (Version 2)
Quarter: 2014Q2

REPORT INFORMATION
  Report Type: Spontaneous
  Country: DE (occurrence: DE)
  Receive Date: 20140321
  Receipt Date: 20140527
  Transmission Date: 20141212
  Serious: Yes (Hospitalization)
  Sender: FDA-Public Use
  Company Number: DE-B.I. PHARMACEUTICALS,INC./RIDGEFIELD-2014-BI-11911DE

PATIENT
  Age: 73 Year
  Sex: Female

DRUGS (8)
  1. PRADAXA [Suspect]
     Indication: ATRIAL FIBRILLATION
     Dosage: 300 MG
     Route: 065
     Dates: start: 20130501, end: 20140228
  2. DIGIMERCK [Concomitant]
     Indication: CARDIAC FAILURE
     Route: 065
  3. DIGIMERCK [Concomitant]
     Indication: HYPERTENSIVE CARDIOMYOPATHY
  4. BISOPROLOL [Concomitant]
     Indication: HYPERTENSION
     Dosage: 10 MG
     Route: 065
  5. TORASEMID [Concomitant]
     Indication: CARDIAC FAILURE
     Dosage: 10 MG
     Route: 065
  6. PREDNISOLON [Concomitant]
     Indication: RHEUMATOID ARTHRITIS
     Dosage: 5 MG
     Route: 065
  7. QUENSYL [Concomitant]
     Dosage: 1 ANZ
     Route: 065
  8. TRIMIPRAMIN [Concomitant]
     Indication: ANXIETY
     Dosage: 50 MG
     Route: 065

REACTIONS (4)
  - Pulmonary embolism [Not Recovered/Not Resolved]
  - Palpitations [Unknown]
  - Dyspnoea [Unknown]
  - Treatment noncompliance [Unknown]
